FAERS Safety Report 23962566 (Version 1)
Quarter: 2024Q2

REPORT INFORMATION
  Report Type: Spontaneous
  Country: US (occurrence: US)
  Receive Date: 20240611
  Receipt Date: 20240611
  Transmission Date: 20240716
  Serious: Yes (Other)
  Sender: FDA-Public Use
  Company Number: US-ABP-000050

PATIENT
  Age: 58 Year
  Sex: Male

DRUGS (6)
  1. ATOVAQUONE [Suspect]
     Active Substance: ATOVAQUONE
     Indication: Babesiosis
     Route: 065
     Dates: start: 202109
  2. AZITHROMYCIN [Suspect]
     Active Substance: AZITHROMYCIN
     Indication: Babesiosis
     Route: 065
     Dates: start: 202109
  3. TAFENOQUINE [Suspect]
     Active Substance: TAFENOQUINE
     Indication: Babesiosis
     Route: 065
  4. ATOVAQUONE\PROGUANIL [Suspect]
     Active Substance: ATOVAQUONE\PROGUANIL
     Indication: Babesiosis
     Route: 065
  5. CLINDAMYCIN [Concomitant]
     Active Substance: CLINDAMYCIN
     Indication: Babesiosis
     Route: 065
  6. QUININE [Concomitant]
     Active Substance: QUININE
     Indication: Babesiosis
     Route: 065

REACTIONS (4)
  - Babesiosis [Not Recovered/Not Resolved]
  - Drug resistance [Not Recovered/Not Resolved]
  - Disease recurrence [Not Recovered/Not Resolved]
  - Treatment failure [Recovered/Resolved]

NARRATIVE: CASE EVENT DATE: 20210901
